FAERS Safety Report 6545578-7 (Version None)
Quarter: 2010Q1

REPORT INFORMATION
  Report Type: 
  Country: None (occurrence: None)
  Receive Date: 20100121
  Receipt Date: 20100113
  Transmission Date: 20100710
  Serious: Yes (Other)
  Sender: FDA-Public Use
  Company Number: US-PFIZER INC-2009304242

PATIENT
  Sex: Female
  Weight: 55 kg

DRUGS (9)
  1. CHANTIX [Suspect]
     Indication: NICOTINE DEPENDENCE
     Dosage: 0.5 MG, 1X/DAY
     Route: 048
     Dates: start: 20091118, end: 20091119
  2. CYMBALTA [Concomitant]
     Indication: DEPRESSION
     Dosage: 30 MG DAILY
  3. FLUVOXAMINE [Concomitant]
     Indication: DEPRESSION
     Dosage: 50 MG DAILY
  4. FLUVOXAMINE [Concomitant]
     Route: 048
  5. OMEPRAZOLE [Concomitant]
     Indication: GASTROOESOPHAGEAL REFLUX DISEASE
     Dosage: 20 MG EVERY MORNING
  6. OMEPRAZOLE [Concomitant]
     Route: 048
  7. ANASTROZOLE [Concomitant]
     Dosage: 1 MG EVERY DAY
  8. ACETYLSALICYLIC ACID [Concomitant]
     Dosage: 81 MG DAILY
     Route: 048
  9. XANAX [Concomitant]
     Indication: ANXIETY
     Dosage: 0.5 MG THREE TIMES A DAY AS NEEDED
     Route: 048

REACTIONS (8)
  - ANXIETY [None]
  - CRYING [None]
  - DEPRESSION [None]
  - DYSPNOEA [None]
  - FEAR [None]
  - IMPAIRED DRIVING ABILITY [None]
  - PANIC REACTION [None]
  - PARANOIA [None]
